FAERS Safety Report 8411690-0 (Version None)
Quarter: 2012Q2

REPORT INFORMATION
  Report Type: 
  Country: None (occurrence: None)
  Receive Date: 20120605
  Receipt Date: 20120530
  Transmission Date: 20120825
  Serious: Yes (Other)
  Sender: FDA-Public Use
  Company Number: US-PFIZER INC-2012084533

PATIENT
  Age: 48 Year
  Sex: Female
  Weight: 47.62 kg

DRUGS (4)
  1. ACETAMINOPHEN AND HYDROCODONE BITARTRATE [Suspect]
     Indication: NECK PAIN
     Dosage: UNK
  2. EFFEXOR XR [Suspect]
     Indication: DEPRESSION
     Dosage: 150 MG, DAILY
     Route: 048
  3. KLONOPIN [Concomitant]
     Indication: ANXIETY
     Dosage: 10 MG, AS NEEDED
  4. EFFEXOR XR [Suspect]
     Dosage: 300 MG, DAILY
     Route: 048

REACTIONS (6)
  - MALAISE [None]
  - DRUG INEFFECTIVE [None]
  - INTERVERTEBRAL DISC INJURY [None]
  - ROAD TRAFFIC ACCIDENT [None]
  - NECK PAIN [None]
  - VOMITING [None]
